FAERS Safety Report 7211144-3 (Version None)
Quarter: 2011Q1

REPORT INFORMATION
  Report Type: 
  Country: None (occurrence: None)
  Receive Date: 20110105
  Receipt Date: 20101223
  Transmission Date: 20110831
  Serious: Yes (Other)
  Sender: FDA-Public Use
  Company Number: US-SANOFI-AVENTIS-2011SA000170

PATIENT
  Age: 65 Year
  Sex: Female

DRUGS (3)
  1. OPTICLICK [Suspect]
     Indication: TYPE 2 DIABETES MELLITUS
  2. ALL OTHER THERAPEUTIC PRODUCTS [Concomitant]
  3. APIDRA [Suspect]
     Indication: TYPE 2 DIABETES MELLITUS
     Dosage: SLIDING SCALE (3-4 TIMES DAILY)
     Route: 058

REACTIONS (2)
  - MACULAR HOLE [None]
  - VISUAL IMPAIRMENT [None]
